FAERS Safety Report 7812218-6 (Version None)
Quarter: 2011Q4

REPORT INFORMATION
  Report Type: 
  Country: None (occurrence: None)
  Receive Date: 20111013
  Receipt Date: 20110807
  Transmission Date: 20120403
  Serious: No
  Sender: FDA-Public Use
  Company Number: US-NOVEN-11US002936

PATIENT
  Age: 53 Year
  Sex: Female

DRUGS (8)
  1. PAXIL [Concomitant]
     Indication: INSOMNIA
     Dosage: 20 MG, QD
     Route: 048
  2. OXYCODONE HCL [Concomitant]
     Indication: BREAKTHROUGH PAIN
     Dosage: 10 MG, QD
     Route: 048
  3. FENTANYL [Suspect]
     Indication: PAIN
     Dosage: 50 UG/HR, Q72H
     Route: 062
     Dates: start: 20110601
  4. SYNTHROID [Concomitant]
     Indication: THYROID DISORDER
     Route: 048
  5. CALCIUM CARBONATE [Concomitant]
     Indication: OSTEOPOROSIS
     Route: 048
  6. AMITRIPTYLINE HCL [Concomitant]
     Indication: SLEEP DISORDER
     Route: 048
  7. VITAMIN E                          /00110501/ [Concomitant]
     Indication: SUPPLEMENTATION THERAPY
     Route: 048
  8. VITAMIN D [Concomitant]
     Indication: OSTEOPOROSIS
     Route: 048

REACTIONS (1)
  - INADEQUATE ANALGESIA [None]
